FAERS Safety Report 16014663 (Version 2)
Quarter: 2019Q1

REPORT INFORMATION
  Report Type: Spontaneous
  Country: DE (occurrence: DE)
  Receive Date: 20190227
  Receipt Date: 20190305
  Transmission Date: 20190418
  Serious: Yes (Death, Life-Threatening, Hospitalization)
  Sender: FDA-Public Use
  Company Number: DE-PFIZER INC-2019086466

PATIENT
  Age: 70 Year
  Sex: Female
  Weight: 101 kg

DRUGS (31)
  1. CALCIUM FOLINATE [Suspect]
     Active Substance: LEUCOVORIN CALCIUM
     Dosage: 500 MG, CYCLIC, DAILY EVERY 2 WEEKS
     Route: 042
     Dates: start: 20130527, end: 20130527
  2. 5-FLUOROURACIL [FLUOROURACIL] [Suspect]
     Active Substance: FLUOROURACIL
     Dosage: 4000 MG, CYCLIC, DAILY EVERY 2 WEEKS
     Route: 041
     Dates: start: 20130527, end: 20130529
  3. 5-FLUOROURACIL [FLUOROURACIL] [Suspect]
     Active Substance: FLUOROURACIL
     Dosage: 800 MG, CYCLIC, DAILY EVERY 2 WEEKS
     Route: 040
     Dates: start: 20130219, end: 20130219
  4. 5-FLUOROURACIL [FLUOROURACIL] [Suspect]
     Active Substance: FLUOROURACIL
     Dosage: 500 MG, CYCLIC, DAILY EVERY 2 WEEKS
     Route: 040
     Dates: start: 20130408, end: 20130408
  5. AVASTIN [Suspect]
     Active Substance: BEVACIZUMAB
     Dosage: 500 MG, CYCLIC, DAILY EVERY 2 WEEKS
     Route: 042
     Dates: start: 20130219
  6. CALCIUM FOLINATE [Suspect]
     Active Substance: LEUCOVORIN CALCIUM
     Dosage: 500 MG, CYCLIC, DAILY EVERY 2 WEEKS
     Route: 042
     Dates: start: 20130408, end: 20130408
  7. IRINOTECAN HCL [Suspect]
     Active Substance: IRINOTECAN HYDROCHLORIDE
     Dosage: 250 MG, CYCLIC, DAILY EVERY 2 WEEKS
     Route: 042
     Dates: start: 20130408, end: 20130408
  8. 5-FLUOROURACIL [FLUOROURACIL] [Suspect]
     Active Substance: FLUOROURACIL
     Dosage: 600 MG, CYCLIC, DAILY EVERY 2 WEEKS
     Route: 040
     Dates: start: 20130513, end: 20130513
  9. AVASTIN [Suspect]
     Active Substance: BEVACIZUMAB
     Indication: COLORECTAL CANCER METASTATIC
     Dosage: 500 MG, CYCLIC, DAILY EVERY 2 WEEKS
     Route: 042
     Dates: start: 20130527
  10. HEPARIN [Concomitant]
     Active Substance: HEPARIN SODIUM
     Indication: PULMONARY EMBOLISM
     Dosage: UNK
     Route: 065
     Dates: start: 20130506, end: 20130621
  11. CALCIUM FOLINATE [Suspect]
     Active Substance: LEUCOVORIN CALCIUM
     Dosage: 500 MG, CYCLIC, DAILY EVERY 2 WEEKS
     Route: 042
     Dates: start: 20130219, end: 20130219
  12. IRINOTECAN HCL [Suspect]
     Active Substance: IRINOTECAN HYDROCHLORIDE
     Dosage: 250 MG, CYCLIC,DAILY EVERY 2 WEEKS
     Route: 042
     Dates: start: 20130429, end: 20130429
  13. 5-FLUOROURACIL [FLUOROURACIL] [Suspect]
     Active Substance: FLUOROURACIL
     Dosage: 800 MG, CYCLIC, DAILY EVERY 2 WEEKS
     Route: 040
     Dates: start: 20130305, end: 20130305
  14. CALCIUM FOLINATE [Suspect]
     Active Substance: LEUCOVORIN CALCIUM
     Dosage: 500 MG, UNK
     Route: 042
     Dates: start: 20130305, end: 20130305
  15. 5-FLUOROURACIL [FLUOROURACIL] [Suspect]
     Active Substance: FLUOROURACIL
     Indication: COLORECTAL CANCER METASTATIC
     Dosage: 6000 MG, CYCLIC, DAILY EVERY 2 WEEKS
     Route: 041
     Dates: start: 20130219, end: 20130221
  16. 5-FLUOROURACIL [FLUOROURACIL] [Suspect]
     Active Substance: FLUOROURACIL
     Dosage: 600 MG, CYCLIC, DAILY EVERY 2 WEEKS
     Route: 040
     Dates: start: 20130429, end: 20130429
  17. 5-FLUOROURACIL [FLUOROURACIL] [Suspect]
     Active Substance: FLUOROURACIL
     Dosage: 4000 MG, CYCLIC, DAILY EVERY 2 WEEKS
     Route: 041
     Dates: start: 20130325, end: 20130327
  18. 5-FLUOROURACIL [FLUOROURACIL] [Suspect]
     Active Substance: FLUOROURACIL
     Dosage: 4000 MG, UNK
     Route: 041
     Dates: start: 20130513, end: 20130515
  19. CALCIUM FOLINATE [Suspect]
     Active Substance: LEUCOVORIN CALCIUM
     Dosage: 500 MG, CYCLIC,  DAILY EVERY 2 WEEKS
     Route: 042
     Dates: start: 20130325, end: 20130325
  20. IRINOTECAN HCL [Suspect]
     Active Substance: IRINOTECAN HYDROCHLORIDE
     Dosage: 250 MG, CYCLIC,DAILY EVERY 2 WEEKS
     Route: 042
     Dates: start: 20130325, end: 20130325
  21. 5-FLUOROURACIL [FLUOROURACIL] [Suspect]
     Active Substance: FLUOROURACIL
     Dosage: 4000 MG, CYCLIC, DAILY EVERY 2 WEEKS
     Route: 041
     Dates: start: 20130408, end: 20130410
  22. AMLODIPIN [AMLODIPINE BESILATE] [Concomitant]
     Indication: HYPERTENSION
     Dosage: UNK
     Route: 065
     Dates: end: 20130721
  23. CALCIUM FOLINATE [Suspect]
     Active Substance: LEUCOVORIN CALCIUM
     Dosage: 500 MG, CYCLIC, DAILY EVERY 2 WEEKS
     Route: 042
     Dates: start: 20130429, end: 20130429
  24. IRINOTECAN HCL [Suspect]
     Active Substance: IRINOTECAN HYDROCHLORIDE
     Dosage: 350 MG, CYCLIC, DAILY EVERY 2 WEEKS
     Route: 042
     Dates: start: 20130305, end: 20130305
  25. 5-FLUOROURACIL [FLUOROURACIL] [Suspect]
     Active Substance: FLUOROURACIL
     Dosage: 600 MG, CYCLIC, DAILY EVERY 2 WEEKS
     Route: 040
     Dates: start: 20130325, end: 20130325
  26. 5-FLUOROURACIL [FLUOROURACIL] [Suspect]
     Active Substance: FLUOROURACIL
     Dosage: 6000 MG, CYCLIC, DAILY EVERY 2 WEEKS
     Route: 041
     Dates: start: 20130305, end: 20130307
  27. 5-FLUOROURACIL [FLUOROURACIL] [Suspect]
     Active Substance: FLUOROURACIL
     Dosage: 4000 MG, UNK
     Route: 041
     Dates: start: 20130429, end: 20130430
  28. CALCIUM FOLINATE [Suspect]
     Active Substance: LEUCOVORIN CALCIUM
     Dosage: 500 MG, CYCLIC, DAILY EVERY 2 WEEKS
     Route: 042
     Dates: start: 20130513, end: 20130513
  29. LISINOPRIL. [Concomitant]
     Active Substance: LISINOPRIL
     Indication: HYPERTENSION
     Dosage: UNK
     Route: 065
     Dates: end: 20130621
  30. IRINOTECAN HCL [Suspect]
     Active Substance: IRINOTECAN HYDROCHLORIDE
     Dosage: 350 MG, CYCLIC, DAILY EVERY 2 WEEKS
     Route: 042
     Dates: start: 20130219, end: 20130219
  31. 5-FLUOROURACIL [FLUOROURACIL] [Suspect]
     Active Substance: FLUOROURACIL
     Dosage: 600 MG, CYCLIC, DAILY EVERY 2 WEEKS
     Route: 040
     Dates: start: 20130527, end: 20130527

REACTIONS (3)
  - Pulmonary embolism [Recovered/Resolved with Sequelae]
  - Ileus [Fatal]
  - Mucosal inflammation [Recovered/Resolved]

NARRATIVE: CASE EVENT DATE: 20130312
